FAERS Safety Report 6244893-4 (Version None)
Quarter: 2009Q2

REPORT INFORMATION
  Report Type: 
  Country: None (occurrence: None)
  Receive Date: 20090625
  Receipt Date: 20090617
  Transmission Date: 20091009
  Serious: Yes (Other)
  Sender: FDA-Public Use
  Company Number: BR-JNJFOC-20090606597

PATIENT
  Sex: Female
  Weight: 65 kg

DRUGS (7)
  1. TYLENOL DC [Suspect]
     Indication: HEADACHE
     Route: 048
  2. SULFADIAZINE [Concomitant]
     Indication: EYE INFECTION TOXOPLASMAL
  3. DARAPRIM [Concomitant]
     Indication: EYE INFECTION TOXOPLASMAL
     Route: 048
  4. FOLINIC ACID [Concomitant]
     Route: 048
  5. UNKNOWN MEDICATION [Concomitant]
     Indication: INFLAMMATION
  6. COSOPT [Concomitant]
     Indication: GLAUCOMA DRUG THERAPY
  7. ALPHAGAN [Concomitant]
     Indication: GLAUCOMA DRUG THERAPY

REACTIONS (4)
  - ASTHENIA [None]
  - BLOOD PRESSURE INCREASED [None]
  - DIZZINESS [None]
  - SKIN DISCOLOURATION [None]
